FAERS Safety Report 6018759-9 (Version None)
Quarter: 2008Q4

REPORT INFORMATION
  Report Type: 
  Country: None (occurrence: None)
  Receive Date: 20081222
  Receipt Date: 20081209
  Transmission Date: 20090506
  Serious: Yes (Other)
  Sender: FDA-Public Use
  Company Number: CIP08001426

PATIENT
  Age: 70 Year
  Sex: Female
  Weight: 45.4 kg

DRUGS (6)
  1. ACTONEL [Suspect]
     Indication: OSTEOPOROSIS
     Dosage: 35 MG ONCE WEEKLY, ORAL
     Route: 048
     Dates: start: 20070101, end: 20080201
  2. CALCIUM + VITAMIN D (CALCIUM, COLECALCIFEROL) [Concomitant]
  3. MICARDIS [Concomitant]
  4. ELAVIL /00002202/(AMITRIPTYLINE HYDROCHLORIDE) [Concomitant]
  5. VYTORIN [Concomitant]
  6. ALLEGRA/01314201/ (FEXOFENADINE) [Concomitant]

REACTIONS (5)
  - GINGIVAL INFECTION [None]
  - GINGIVAL ULCERATION [None]
  - IMPAIRED HEALING [None]
  - ORAL PAIN [None]
  - TOOTH DISORDER [None]
